FAERS Safety Report 4333944-X (Version None)
Quarter: 2004Q2

REPORT INFORMATION
  Report Type: 
  Country: None (occurrence: None)
  Receive Date: 20040402
  Receipt Date: 20040323
  Transmission Date: 20050107
  Serious: Yes (Hospitalization, Other)
  Sender: FDA-Public Use
  Company Number: ZONI001376

PATIENT
  Age: 19 Year
  Sex: Male

DRUGS (3)
  1. ZONEGRAN [Suspect]
     Indication: CONVULSION
     Dosage: ORAL
     Route: 048
  2. TEGRETOL [Concomitant]
  3. KLONOPIN [Concomitant]

REACTIONS (5)
  - CONVULSION [None]
  - EUSTACHIAN TUBE DISORDER [None]
  - FALL [None]
  - INJURY [None]
  - JAW FRACTURE [None]
